FAERS Safety Report 6041174-9 (Version None)
Quarter: 2009Q1

REPORT INFORMATION
  Report Type: 
  Country: None (occurrence: None)
  Receive Date: 20090116
  Receipt Date: 20080910
  Transmission Date: 20090719
  Serious: Yes (Hospitalization)
  Sender: FDA-Public Use
  Company Number: US-BRISTOL-MYERS SQUIBB COMPANY-14331094

PATIENT
  Age: 18 Year
  Sex: Male

DRUGS (4)
  1. ABILIFY [Suspect]
     Indication: BIPOLAR I DISORDER
     Dosage: THE DOSE WAS STARTED AT 5MG AND AFTER SEVERAL WEEKS IT WAS INCREASED TO 10MG
     Dates: start: 20071113, end: 20080101
  2. ABILIFY [Suspect]
     Indication: OBSESSIVE-COMPULSIVE DISORDER
     Dosage: THE DOSE WAS STARTED AT 5MG AND AFTER SEVERAL WEEKS IT WAS INCREASED TO 10MG
     Dates: start: 20071113, end: 20080101
  3. ABILIFY [Suspect]
     Indication: MENTAL RETARDATION
     Dosage: THE DOSE WAS STARTED AT 5MG AND AFTER SEVERAL WEEKS IT WAS INCREASED TO 10MG
     Dates: start: 20071113, end: 20080101
  4. GLEEVEC [Concomitant]

REACTIONS (1)
  - WEIGHT DECREASED [None]
